FAERS Safety Report 5407544-4 (Version None)
Quarter: 2007Q3

REPORT INFORMATION
  Report Type: 
  Country: None (occurrence: None)
  Receive Date: 20070807
  Receipt Date: 20070726
  Transmission Date: 20080115
  Serious: Yes (Disabling, Other)
  Sender: FDA-Public Use
  Company Number: FR-PFIZER INC-2007031496

PATIENT
  Sex: Female
  Weight: 75 kg

DRUGS (2)
  1. RELPAX [Suspect]
     Indication: MIGRAINE
     Dates: start: 20070416, end: 20070416
  2. DOLIPRANE [Concomitant]
     Route: 048
     Dates: start: 20070414, end: 20070416

REACTIONS (3)
  - CHEST PAIN [None]
  - DRUG INEFFECTIVE [None]
  - MENINGEAL DISORDER [None]
